FAERS Safety Report 25872171 (Version 1)
Quarter: 2025Q4

REPORT INFORMATION
  Report Type: Spontaneous
  Country: JP (occurrence: JP)
  Receive Date: 20251002
  Receipt Date: 20251002
  Transmission Date: 20260117
  Serious: Yes (Hospitalization)
  Sender: NOVARTIS
  Company Number: JP-002147023-NVSJ2025JP009772

PATIENT
  Age: 9 Decade
  Sex: Male

DRUGS (1)
  1. LEQVIO [Suspect]
     Active Substance: INCLISIRAN SODIUM
     Indication: Type IIa hyperlipidaemia
     Dosage: 300 MG
     Route: 058
     Dates: start: 20250207, end: 20250207

REACTIONS (2)
  - Chronic myeloid leukaemia [Unknown]
  - Concomitant disease aggravated [Unknown]
